FAERS Safety Report 9779379 (Version 1)
Quarter: 2013Q4

REPORT INFORMATION
  Report Type: Spontaneous
  Country: US (occurrence: US)
  Receive Date: 20131223
  Receipt Date: 20131223
  Transmission Date: 20140711
  Serious: Yes (Hospitalization)
  Sender: FDA-Public Use
  Company Number: US-PERRIGO-13US012856

PATIENT
  Age: 8 Month
  Sex: Male
  Weight: 8.9 kg

DRUGS (7)
  1. ACETAMINOPHEN [Suspect]
     Indication: PROCEDURAL PAIN
     Dosage: 325 MG LOADING DOSE
     Route: 054
  2. ACETAMINOPHEN [Suspect]
     Dosage: 5 DOSES
     Route: 054
  3. ACETAMINOPHEN [Suspect]
     Indication: PROCEDURAL PAIN
     Dosage: 134 MG X 2
     Route: 048
  4. ACETAMINOPHEN [Suspect]
     Dosage: 80 MG X7 OVER 48 HOURS
     Route: 048
  5. FENTANYL [Concomitant]
     Indication: ANAESTHESIA
     Dosage: UNK
     Route: 065
  6. DESFLURANE [Concomitant]
     Indication: ANAESTHESIA
     Dosage: UNK
     Route: 065
  7. OFLOXACIN [Concomitant]
     Indication: PRODUCT USED FOR UNKNOWN INDICATION
     Dosage: 1 DROP EACH EAR BID
     Route: 001

REACTIONS (9)
  - Hepatitis acute [Recovered/Resolved]
  - Grand mal convulsion [Recovered/Resolved]
  - Hepatic encephalopathy [Recovered/Resolved]
  - Renal impairment [Recovered/Resolved]
  - Lethargy [Recovered/Resolved]
  - Metabolic acidosis [Recovered/Resolved]
  - Thrombocytopenia [Recovered/Resolved]
  - Vomiting [Recovered/Resolved]
  - Decreased appetite [Recovered/Resolved]
